FAERS Safety Report 25435620 (Version 2)
Quarter: 2025Q4

REPORT INFORMATION
  Report Type: Spontaneous
  Country: CA (occurrence: CA)
  Receive Date: 20250613
  Receipt Date: 20251015
  Transmission Date: 20260117
  Serious: Yes (Other)
  Sender: REGENERON
  Company Number: CA-REGENERON PHARMACEUTICALS, INC.-2025-095368

PATIENT
  Age: 39 Year
  Sex: Male

DRUGS (9)
  1. LIBTAYO [Suspect]
     Active Substance: CEMIPLIMAB-RWLC
     Indication: Product used for unknown indication
     Dosage: UNK
     Route: 065
  2. SONIDEGIB [Suspect]
     Active Substance: SONIDEGIB
     Indication: Product used for unknown indication
     Dosage: UNK
     Route: 065
  3. ERIVEDGE [Suspect]
     Active Substance: VISMODEGIB
     Indication: Basal cell naevus syndrome
     Dosage: 150 MG, QD
     Route: 048
  4. ERIVEDGE [Suspect]
     Active Substance: VISMODEGIB
     Dosage: 150 MG, QD
     Route: 048
  5. ERIVEDGE [Suspect]
     Active Substance: VISMODEGIB
     Dosage: UNK
     Route: 065
  6. ERIVEDGE [Suspect]
     Active Substance: VISMODEGIB
     Dosage: 150 MG, QD
     Route: 048
  7. ERIVEDGE [Suspect]
     Active Substance: VISMODEGIB
     Dosage: 150 MG, QD
     Route: 048
  8. ERIVEDGE [Suspect]
     Active Substance: VISMODEGIB
     Dosage: 150 MG, QD
     Route: 048
  9. ERIVEDGE [Suspect]
     Active Substance: VISMODEGIB
     Dosage: 150 MG, QD
     Route: 048

REACTIONS (8)
  - Basal cell carcinoma [Unknown]
  - Dysgeusia [Unknown]
  - Major depression [Unknown]
  - Muscle spasms [Unknown]
  - Disease progression [Unknown]
  - Drug ineffective [Unknown]
  - Musculoskeletal pain [Unknown]
  - Myalgia [Unknown]
